FAERS Safety Report 19273826 (Version 1)
Quarter: 2021Q2

REPORT INFORMATION
  Report Type: Spontaneous
  Country: US (occurrence: US)
  Receive Date: 20210519
  Receipt Date: 20210519
  Transmission Date: 20210717
  Serious: No
  Sender: FDA-Public Use
  Company Number: None

PATIENT
  Age: 53 Year
  Sex: Male
  Weight: 75 kg

DRUGS (2)
  1. AMPICILLIN (AMPICILLIN NA 2GM/VIL INJ) [Suspect]
     Active Substance: AMPICILLIN SODIUM
     Indication: TOE AMPUTATION
     Dosage: ?          OTHER FREQUENCY:UNKNOWN;OTHER ROUTE:IV?
     Route: 042
     Dates: start: 20210316, end: 20210321
  2. VANCOMYCIN (VANCOMYCIN HCL 1GM/VIL INJ) [Suspect]
     Active Substance: VANCOMYCIN HYDROCHLORIDE
     Dosage: ?          OTHER ROUTE:IV?
     Dates: start: 20210307, end: 20210315

REACTIONS (2)
  - Nephritis [None]
  - Tubulointerstitial nephritis [None]

NARRATIVE: CASE EVENT DATE: 20210319
